FAERS Safety Report 18453295 (Version 1)
Quarter: 2020Q4

REPORT INFORMATION
  Report Type: Report from Study
  Country: CA (occurrence: CA)
  Receive Date: 20201102
  Receipt Date: 20201102
  Transmission Date: 20210114
  Serious: Yes (Other)
  Sender: FDA-Public Use
  Company Number: CA-JNJFOC-20200435330

PATIENT
  Age: 22 Year
  Sex: Female

DRUGS (2)
  1. STELARA [Suspect]
     Active Substance: USTEKINUMAB
     Route: 058
  2. STELARA [Suspect]
     Active Substance: USTEKINUMAB
     Indication: CROHN^S DISEASE
     Dosage: ON 27-APR-2020, THE PATIENT RECEIVED 6TH USTEKINUMAB  INFUSION FOR DOSE OF 90 MG AND PARTIAL HARVEY-
     Route: 058
     Dates: start: 20190628

REACTIONS (4)
  - Diarrhoea [Recovered/Resolved]
  - General physical health deterioration [Unknown]
  - Chlamydial infection [Recovered/Resolved]
  - Abdominal pain [Unknown]

NARRATIVE: CASE EVENT DATE: 2020
